FAERS Safety Report 5193845-4 (Version None)
Quarter: 2006Q4

REPORT INFORMATION
  Report Type: 
  Country: None (occurrence: None)
  Receive Date: 20061228
  Receipt Date: 20061205
  Transmission Date: 20070319
  Serious: Yes (Hospitalization, Other)
  Sender: FDA-Public Use
  Company Number: US-AMGEN-US202366

PATIENT
  Age: 63 Year
  Sex: Male

DRUGS (4)
  1. ARANESP [Suspect]
     Indication: ANAEMIA
     Route: 058
     Dates: start: 20061101
  2. VANCOMYCIN [Concomitant]
  3. ROCEPHIN [Concomitant]
  4. TOBRAMYCIN [Concomitant]

REACTIONS (9)
  - ADVERSE DRUG REACTION [None]
  - ASPERGILLOSIS [None]
  - AZOTAEMIA [None]
  - COMA [None]
  - DEHYDRATION [None]
  - PNEUMONIA [None]
  - PNEUMONITIS [None]
  - RENAL TUBULAR NECROSIS [None]
  - SEPSIS [None]
